FAERS Safety Report 25287884 (Version 6)
Quarter: 2025Q4

REPORT INFORMATION
  Report Type: Report from Study
  Country: EU (occurrence: EU)
  Receive Date: 20250509
  Receipt Date: 20251221
  Transmission Date: 20260118
  Serious: Yes (Hospitalization)
  Sender: ABBVIE
  Company Number: EU-ABBVIE-6086296

PATIENT
  Age: 48 Year
  Sex: Female

DRUGS (12)
  1. FOSCARBIDOPA\FOSLEVODOPA [Suspect]
     Active Substance: FOSCARBIDOPA\FOSLEVODOPA
     Indication: Parkinson^s disease
     Dosage: SWITCHED FROM LOW TO CONTINUOUS RATE
     Route: 058
     Dates: start: 20241022
  2. FOSCARBIDOPA\FOSLEVODOPA [Suspect]
     Active Substance: FOSCARBIDOPA\FOSLEVODOPA
     Dosage: CRN: 0.18 ML/H; CR: 0.33 ML/H; CRH: 0.35 ML/H
     Route: 058
  3. FOSCARBIDOPA\FOSLEVODOPA [Suspect]
     Active Substance: FOSCARBIDOPA\FOSLEVODOPA
     Dosage: CRN: 0.16 ML/H, CR:0.34 ML/H, CRH: 0.38 ML/H
     Route: 058
     Dates: end: 20250406
  4. FOSCARBIDOPA\FOSLEVODOPA [Suspect]
     Active Substance: FOSCARBIDOPA\FOSLEVODOPA
     Dosage: CRN: 0.16 ML/H, CR:0.34 ML/H, CRH: 0.38 ML/H.
     Route: 058
     Dates: start: 20250408, end: 2025
  5. FOSCARBIDOPA\FOSLEVODOPA [Suspect]
     Active Substance: FOSCARBIDOPA\FOSLEVODOPA
     Dosage: DOSAGE : CRN: 0.18 ML/H; CR: 0.30 ML/H; CRH: 0.32ML/H; ED: 0.20 ML.
     Route: 058
     Dates: start: 2025, end: 2025
  6. FOSCARBIDOPA\FOSLEVODOPA [Suspect]
     Active Substance: FOSCARBIDOPA\FOSLEVODOPA
     Dosage: CRN 0.24 ML/H, CR 0.28 ML/H, CRH 0.30 ML/H, ED 0.20 ML
     Route: 058
     Dates: start: 2025, end: 2025
  7. FOSCARBIDOPA\FOSLEVODOPA [Suspect]
     Active Substance: FOSCARBIDOPA\FOSLEVODOPA
     Dosage: DOSAGE: CRN: 0.15 ML/H, CR: 0.17 ML/H, CRH: 0.19 ML/H.
     Route: 058
  8. FOSCARBIDOPA\FOSLEVODOPA [Suspect]
     Active Substance: FOSCARBIDOPA\FOSLEVODOPA
     Dosage: DOSAGE: CRN 0.15ML/H, CR 0.18ML/H, CRH 0.24ML/H,
     Route: 058
     Dates: start: 2025
  9. DULOXETINE [Concomitant]
     Active Substance: DULOXETINE
     Indication: Parkinson^s disease
  10. XADAGO [Concomitant]
     Active Substance: SAFINAMIDE MESYLATE
     Indication: Parkinson^s disease
  11. PANTOPRAZOLE SODIUM [Concomitant]
     Active Substance: PANTOPRAZOLE SODIUM
     Indication: Parkinson^s disease
  12. PREGABALIN [Concomitant]
     Active Substance: PREGABALIN
     Indication: Product used for unknown indication

REACTIONS (13)
  - Speech disorder [Not Recovered/Not Resolved]
  - Hypokinesia [Not Recovered/Not Resolved]
  - Hospitalisation [Unknown]
  - Condition aggravated [Not Recovered/Not Resolved]
  - Movement disorder [Not Recovered/Not Resolved]
  - Asthenia [Not Recovered/Not Resolved]
  - Underdose [Unknown]
  - Malaise [Not Recovered/Not Resolved]
  - Stress [Not Recovered/Not Resolved]
  - On and off phenomenon [Not Recovered/Not Resolved]
  - Dyskinesia [Not Recovered/Not Resolved]
  - Sleep disorder [Not Recovered/Not Resolved]
  - Restlessness [Not Recovered/Not Resolved]

NARRATIVE: CASE EVENT DATE: 20250101
